FAERS Safety Report 8953575 (Version 1)
Quarter: 2012Q4

REPORT INFORMATION
  Report Type: 
  Country: US (occurrence: US)
  Receive Date: 20121206
  Receipt Date: 20121206
  Transmission Date: 20130627
  Serious: No
  Sender: FDA-Public Use
  Company Number: US-B.I. PHARMACEUTICALS,INC./RIDGEFIELD-2012-BP-26369BP

PATIENT
  Age: 66 None
  Sex: Female
  Weight: 66 kg

DRUGS (4)
  1. SPIRIVA [Suspect]
     Indication: EMPHYSEMA
     Dosage: 18 mcg
     Route: 055
     Dates: start: 201203
  2. SPIRIVA [Suspect]
     Route: 048
     Dates: start: 20121023, end: 20121023
  3. NORVASC [Concomitant]
     Indication: HYPERTENSION
     Dosage: 10 mg
     Route: 048
     Dates: start: 1992
  4. HYDROCHLOROTHIAZIDE [Concomitant]
     Indication: HYPERTENSION
     Dosage: 12.5 mg
     Route: 048
     Dates: start: 1992

REACTIONS (2)
  - Cough [Not Recovered/Not Resolved]
  - Incorrect route of drug administration [Recovered/Resolved]
